FAERS Safety Report 5085772-8 (Version None)
Quarter: 2006Q3

REPORT INFORMATION
  Report Type: 
  Country: None (occurrence: None)
  Receive Date: 20060817
  Receipt Date: 20060802
  Transmission Date: 20061208
  Serious: Yes (Other)
  Sender: FDA-Public Use
  Company Number: 2006096712

PATIENT
  Sex: Female
  Weight: 83.9154 kg

DRUGS (10)
  1. NEURONTIN [Suspect]
     Indication: DIABETIC NEUROPATHY
     Dates: end: 20060601
  2. LYRICA [Suspect]
     Indication: DIABETIC NEUROPATHY
     Dosage: 300 MG (150 MG, 2 IN 1 D),
     Dates: start: 20060601
  3. NITROGLYCERIN [Concomitant]
  4. OXAPROZIN [Concomitant]
  5. GLIPIZIDE [Concomitant]
  6. LANTUS [Concomitant]
  7. METOPROLOL TARTRATE [Concomitant]
  8. HYDROCHLOROTHIAZIDE [Concomitant]
  9. LEVOTHYROXINE SODIUM [Concomitant]
  10. DIPHENOXYLATE [Concomitant]

REACTIONS (6)
  - DRUG INEFFECTIVE [None]
  - ENDODONTIC PROCEDURE [None]
  - INSOMNIA [None]
  - POST PROCEDURAL COMPLICATION [None]
  - TOOTH DISORDER [None]
  - TOOTH FRACTURE [None]
